FAERS Safety Report 15568322 (Version 1)
Quarter: 2018Q4

REPORT INFORMATION
  Report Type: Spontaneous
  Country: IL (occurrence: IL)
  Receive Date: 20181031
  Receipt Date: 20181031
  Transmission Date: 20190205
  Serious: Yes (Other)
  Sender: FDA-Public Use
  Company Number: IL-ALEMBIC PHARMACUETICALS LIMITED-2018SCAL000798

PATIENT

DRUGS (1)
  1. AMANTADINE HYDROCHLORIDE. [Suspect]
     Active Substance: AMANTADINE HYDROCHLORIDE
     Indication: PARKINSONISM
     Dosage: UNK

REACTIONS (1)
  - Acute psychosis [Recovered/Resolved]
